FAERS Safety Report 8348127-6 (Version None)
Quarter: 2012Q2

REPORT INFORMATION
  Report Type: 
  Country: None (occurrence: None)
  Receive Date: 20120509
  Receipt Date: 20120507
  Transmission Date: 20120825
  Serious: Yes (Death, Life-Threatening, Hospitalization, Other)
  Sender: FDA-Public Use
  Company Number: PHHY2012DE025886

PATIENT
  Sex: Female
  Weight: 84 kg

DRUGS (8)
  1. DIOVAN HCT [Suspect]
     Indication: HYPERTENSION
     Route: 048
     Dates: start: 20080520, end: 20081216
  2. ANTICOAGULANTS [Concomitant]
  3. DIURETICS [Concomitant]
  4. METOPROLOL TARTRATE [Concomitant]
     Indication: HYPERTENSION
     Dosage: 50 MG, PER DAY
     Route: 048
     Dates: start: 20081104
  5. CALCIUM CHANNEL BLOCKERS [Concomitant]
     Dates: end: 20091020
  6. TORSEMIDE [Concomitant]
     Indication: CARDIAC FAILURE
     Dosage: 10 MG, PER DAY
     Route: 048
     Dates: start: 20081104
  7. RASILEZ [Suspect]
     Indication: HYPERTENSION
     Dosage: 150 MG, PER DAY
     Route: 048
     Dates: start: 20081104, end: 20100111
  8. NITRATES [Concomitant]

REACTIONS (7)
  - BLOOD PRESSURE DIASTOLIC INCREASED [None]
  - SEPSIS [None]
  - HAEMORRHAGIC ANAEMIA [None]
  - DYSPNOEA [None]
  - ADENOCARCINOMA [None]
  - MULTI-ORGAN FAILURE [None]
  - HEART RATE DECREASED [None]
